FAERS Safety Report 12406224 (Version 2)
Quarter: 2016Q2

REPORT INFORMATION
  Report Type: Spontaneous
  Country: US (occurrence: US)
  Receive Date: 20160526
  Receipt Date: 20160629
  Transmission Date: 20160815
  Serious: No
  Sender: FDA-Public Use
  Company Number: US-PFIZER INC-2016245879

PATIENT
  Age: 65 Year
  Sex: Female

DRUGS (3)
  1. NEURONTIN [Suspect]
     Active Substance: GABAPENTIN
     Indication: FIBROMYALGIA
  2. NEURONTIN [Suspect]
     Active Substance: GABAPENTIN
     Indication: SPINAL CORD INJURY
  3. NEURONTIN [Suspect]
     Active Substance: GABAPENTIN
     Indication: NEURALGIA

REACTIONS (1)
  - Drug ineffective for unapproved indication [Unknown]
